FAERS Safety Report 23465977 (Version 1)
Quarter: 2024Q1

REPORT INFORMATION
  Report Type: Spontaneous
  Country: BR (occurrence: BR)
  Receive Date: 20240201
  Receipt Date: 20240201
  Transmission Date: 20240410
  Serious: Yes (Hospitalization, Other)
  Sender: FDA-Public Use
  Company Number: BR-PFIZER INC-PV202400012993

PATIENT
  Age: 73 Year
  Sex: Male

DRUGS (1)
  1. VYNDAQEL [Suspect]
     Active Substance: TAFAMIDIS MEGLUMINE
     Dosage: 4 DF, DAILY
     Dates: start: 202209

REACTIONS (5)
  - Arrhythmia [Unknown]
  - Pulmonary embolism [Unknown]
  - Dyspnoea [Unknown]
  - Fatigue [Unknown]
  - Oxygen saturation decreased [Unknown]

NARRATIVE: CASE EVENT DATE: 20220901
